FAERS Safety Report 21486958 (Version 1)
Quarter: 2022Q4

REPORT INFORMATION
  Report Type: Spontaneous
  Country: US (occurrence: None)
  Receive Date: 20221020
  Receipt Date: 20221020
  Transmission Date: 20230113
  Serious: Yes (Other)
  Sender: FDA-Public Use
  Company Number: 2022A347769

PATIENT
  Age: 53 Year
  Sex: Female

DRUGS (5)
  1. OMEPRAZOLE [Suspect]
     Active Substance: OMEPRAZOLE
     Route: 048
  2. TOZINAMERAN [Suspect]
     Active Substance: TOZINAMERAN
     Route: 030
     Dates: start: 20210331
  3. TOZINAMERAN [Suspect]
     Active Substance: TOZINAMERAN
     Route: 030
     Dates: start: 20220507
  4. TOZINAMERAN [Suspect]
     Active Substance: TOZINAMERAN
     Route: 030
     Dates: start: 20210310
  5. TOZINAMERAN [Suspect]
     Active Substance: TOZINAMERAN
     Route: 030
     Dates: start: 20210827

REACTIONS (6)
  - Immunodeficiency [Unknown]
  - White blood cell count decreased [Unknown]
  - Illness [Unknown]
  - Chills [Unknown]
  - Pyrexia [Unknown]
  - Asthenia [Unknown]
